FAERS Safety Report 8054326-3 (Version None)
Quarter: 2012Q1

REPORT INFORMATION
  Report Type: 
  Country: None (occurrence: None)
  Receive Date: 20120118
  Receipt Date: 20120112
  Transmission Date: 20120608
  Serious: Yes (Life-Threatening)
  Sender: FDA-Public Use
  Company Number: PHHO2011DE02120

PATIENT
  Sex: Male
  Weight: 93 kg

DRUGS (14)
  1. INSPRA [Concomitant]
  2. METFORMIN HCL [Concomitant]
  3. BLINDED ALISKIREN [Suspect]
     Indication: CARDIAC FAILURE
     Dosage: CODE NOT BROKEN
     Route: 048
     Dates: start: 20100128
  4. ENALAPRIL MALEATE [Suspect]
     Indication: CARDIAC FAILURE
     Dosage: CODE NOT BROKEN
     Route: 048
     Dates: start: 20100128
  5. CARVEDILOL [Suspect]
  6. DELIX [Concomitant]
  7. BLINDED NO TREATMENT RECEIVED [Suspect]
     Indication: CARDIAC FAILURE
     Dosage: CODE NOT BROKEN
     Route: 048
     Dates: start: 20100128
  8. BISOPROLOL FUMARATE [Concomitant]
  9. ALISKIREN [Suspect]
     Indication: CARDIAC FAILURE
     Dosage: 10 MG, BID
     Route: 048
     Dates: start: 20100106, end: 20100127
  10. EZETIMIBE [Concomitant]
  11. ENALAPRIL MALEATE [Suspect]
     Indication: CARDIAC FAILURE
     Dosage: 10 MG, BID
     Route: 048
     Dates: start: 20091207, end: 20100105
  12. EFFIENT [Concomitant]
  13. LASIX [Concomitant]
  14. MARCUMAR [Concomitant]

REACTIONS (3)
  - DIZZINESS [None]
  - PRESYNCOPE [None]
  - INFLUENZA LIKE ILLNESS [None]
